FAERS Safety Report 4815907-0 (Version None)
Quarter: 2005Q4

REPORT INFORMATION
  Report Type: 
  Country: None (occurrence: None)
  Receive Date: 20051031
  Receipt Date: 20051024
  Transmission Date: 20060501
  Serious: Yes (Other)
  Sender: FDA-Public Use
  Company Number: DE-JNJFOC-20051005307

PATIENT
  Sex: Female
  Weight: 50 kg

DRUGS (2)
  1. PROPULSIN [Suspect]
     Indication: DRUG USE FOR UNKNOWN INDICATION
     Dosage: 125MG IN TOTAL
     Route: 048
  2. NOCTAMID [Suspect]
     Indication: DRUG USE FOR UNKNOWN INDICATION
     Route: 048

REACTIONS (4)
  - OVERDOSE [None]
  - SOMNOLENCE [None]
  - SUICIDE ATTEMPT [None]
  - TACHYCARDIA [None]
